FAERS Safety Report 7243650-X (Version None)
Quarter: 2011Q1

REPORT INFORMATION
  Report Type: 
  Country: None (occurrence: None)
  Receive Date: 20110125
  Receipt Date: 20110117
  Transmission Date: 20110831
  Serious: Yes (Hospitalization)
  Sender: FDA-Public Use
  Company Number: PHHO2010JP11748

PATIENT
  Sex: Female
  Weight: 72 kg

DRUGS (18)
  1. LIPITOR [Concomitant]
  2. SANDIMMUNE [Concomitant]
     Indication: RENAL TRANSPLANT
  3. NEORAL [Suspect]
     Indication: RENAL TRANSPLANT
     Dosage: 200 MG
     Route: 048
     Dates: start: 20081012, end: 20100913
  4. ARTIST [Concomitant]
  5. MYCOPHENOLATE MOFETIL [Suspect]
     Indication: RENAL TRANSPLANT
     Dosage: 1000 MG
     Route: 048
     Dates: start: 20081016, end: 20081221
  6. WYTENS [Concomitant]
  7. PREDONINE [Suspect]
     Indication: RENAL TRANSPLANT
     Dosage: 10 MG
     Route: 048
     Dates: start: 20081012, end: 20090108
  8. PREDONINE [Suspect]
     Dosage: 5 MG
     Route: 048
     Dates: start: 20090109
  9. SIMVASTATIN [Concomitant]
  10. ALDACTONE [Concomitant]
  11. FLUITRAN [Concomitant]
     Indication: OEDEMA
  12. SIMULECT [Concomitant]
     Indication: RENAL TRANSPLANT
  13. ZETIA [Concomitant]
  14. EPLERENONE [Concomitant]
     Indication: HYPERTENSION
  15. MYCOPHENOLATE MOFETIL [Suspect]
     Dosage: 2000 MG
     Route: 048
     Dates: start: 20081222
  16. TAKEPRON [Concomitant]
  17. SALOBEL [Concomitant]
     Indication: HYPERURICAEMIA
  18. MICARDIS [Concomitant]

REACTIONS (4)
  - TOXICITY TO VARIOUS AGENTS [None]
  - BLOOD CREATININE INCREASED [None]
  - NEPHROPATHY TOXIC [None]
  - CHRONIC ALLOGRAFT NEPHROPATHY [None]
